FAERS Safety Report 8806015 (Version 1)
Quarter: 2012Q4

REPORT INFORMATION
  Report Type: 
  Country: US (occurrence: US)
  Receive Date: 20120925
  Receipt Date: 20120925
  Transmission Date: 20130627
  Serious: No
  Sender: FDA-Public Use
  Company Number: US-009507513-1209USA007045

PATIENT
  Sex: Male
  Weight: 140.59 kg

DRUGS (4)
  1. PEGINTRON [Suspect]
     Indication: HEPATITIS C
     Dosage: UNK
     Dates: start: 20090701, end: 20100601
  2. PEGINTRON [Suspect]
     Dosage: UNK
     Dates: start: 20120831
  3. REBETOL [Suspect]
     Indication: HEPATITIS C
     Dosage: UNK
     Dates: start: 20090701, end: 20100601
  4. REBETOL [Suspect]
     Dosage: UNK
     Dates: start: 20120831

REACTIONS (7)
  - White blood cell count decreased [Unknown]
  - Drug ineffective [Unknown]
  - Injection site erythema [Unknown]
  - Injection site pain [Unknown]
  - Injection site pruritus [Unknown]
  - White blood cell count decreased [Unknown]
  - Headache [Unknown]
